FAERS Safety Report 10649149 (Version 10)
Quarter: 2016Q2

REPORT INFORMATION
  Report Type: Report from Study
  Country: US (occurrence: US)
  Receive Date: 20141212
  Receipt Date: 20160411
  Transmission Date: 20160815
  Serious: Yes (Other)
  Sender: FDA-Public Use
  Company Number: US-SA-2014SA149304

PATIENT
  Age: 63 Year
  Sex: Female

DRUGS (14)
  1. AUBAGIO [Suspect]
     Active Substance: TERIFLUNOMIDE
     Indication: MULTIPLE SCLEROSIS
     Route: 048
     Dates: start: 20141110
  2. AVONEX [Concomitant]
     Active Substance: INTERFERON BETA-1A
     Dates: start: 20141015, end: 20141016
  3. REBIF [Concomitant]
     Active Substance: INTERFERON BETA-1A
     Indication: MULTIPLE SCLEROSIS
     Dates: start: 20141015, end: 20141016
  4. AUBAGIO [Suspect]
     Active Substance: TERIFLUNOMIDE
     Indication: MULTIPLE SCLEROSIS
     Route: 048
     Dates: start: 20141020, end: 20141101
  5. RELPAX [Concomitant]
     Active Substance: ELETRIPTAN HYDROBROMIDE
     Indication: HEADACHE
  6. AUBAGIO [Suspect]
     Active Substance: TERIFLUNOMIDE
     Indication: MULTIPLE SCLEROSIS
     Route: 048
     Dates: start: 20141020, end: 20141101
  7. BETASERON [Concomitant]
     Active Substance: INTERFERON BETA-1B
     Dates: start: 20141015, end: 20141016
  8. COPAXONE [Concomitant]
     Active Substance: GLATIRAMER ACETATE
     Dates: start: 20141015, end: 20141016
  9. TECFIDERA [Concomitant]
     Active Substance: DIMETHYL FUMARATE
     Indication: MULTIPLE SCLEROSIS
     Dates: start: 20141015, end: 20141016
  10. VITAMIN B COMPLEX [Concomitant]
     Active Substance: CYANOCOBALAMIN\DEXPANTHENOL\NIACINAMIDE\PYRIDOXINE HYDROCHLORIDE\RIBOFLAVIN 5^-PHOSPHATE SODIUM\THIAMINE HYDROCHLORIDE\VITAMIN B COMPLEX
  11. AUBAGIO [Suspect]
     Active Substance: TERIFLUNOMIDE
     Indication: MULTIPLE SCLEROSIS
     Route: 048
     Dates: start: 20141110
  12. GILENYA [Concomitant]
     Active Substance: FINGOLIMOD HYDROCHLORIDE
     Indication: MULTIPLE SCLEROSIS
     Dates: start: 20141015, end: 20141016
  13. TYSABRI [Concomitant]
     Active Substance: NATALIZUMAB
     Dates: start: 20141015, end: 20141016
  14. COENZYME Q10 [Concomitant]
     Active Substance: UBIDECARENONE

REACTIONS (15)
  - Back pain [Recovering/Resolving]
  - Influenza like illness [Recovering/Resolving]
  - Memory impairment [Not Recovered/Not Resolved]
  - Muscle spasticity [Unknown]
  - Fatigue [Not Recovered/Not Resolved]
  - Dizziness [Recovered/Resolved]
  - Therapeutic response decreased [Unknown]
  - Feeling abnormal [Unknown]
  - Malaise [Recovering/Resolving]
  - Asthenia [Recovering/Resolving]
  - Nuclear magnetic resonance imaging abnormal [Recovered/Resolved]
  - Laceration [Unknown]
  - Stem cell transplant [Unknown]
  - Fall [Unknown]
  - Pain [Recovering/Resolving]

NARRATIVE: CASE EVENT DATE: 201410
